FAERS Safety Report 8765184 (Version 2)
Quarter: 2014Q2

REPORT INFORMATION
  Report Type: Spontaneous
  Country: US (occurrence: US)
  Receive Date: 20120903
  Receipt Date: 20140423
  Transmission Date: 20141212
  Serious: No
  Sender: FDA-Public Use
  Company Number: US-PFIZER INC-2012209010

PATIENT
  Age: 53 Year
  Sex: Female

DRUGS (15)
  1. LYRICA [Suspect]
     Dosage: 75 MG, UNK
  2. NEURONTIN [Suspect]
     Dosage: 600 MG, UNK
  3. METRONIDAZOLE [Suspect]
  4. METFORMIN HCL [Suspect]
     Dosage: UNK
  5. TETRACYCLINE HCL [Suspect]
     Dosage: UNK
  6. ERYTHROMYCIN [Suspect]
     Dosage: UNK
  7. PROVENTIL AER HFA [Suspect]
     Dosage: UNK
  8. LASIX [Suspect]
     Dosage: UNK
  9. AMITRIPTYLINE [Suspect]
     Dosage: UNK
  10. ZANAFLEX [Suspect]
     Dosage: UNK
  11. ANASPAZ [Suspect]
     Dosage: UNK
  12. BENADRYL [Suspect]
     Dosage: UNK
  13. PEPTO-BISMOL [Suspect]
     Dosage: UNK
  14. BIAXIN XL [Suspect]
  15. PHENERGAN [Suspect]
     Dosage: UNK

REACTIONS (1)
  - Drug hypersensitivity [Unknown]
